FAERS Safety Report 8766270 (Version 4)
Quarter: 2014Q4

REPORT INFORMATION
  Report Type: Spontaneous
  Country: GB (occurrence: GB)
  Receive Date: 20120904
  Receipt Date: 20141223
  Transmission Date: 20150529
  Serious: Yes (Hospitalization, Other)
  Sender: FDA-Public Use
  Company Number: GB-ASTRAZENECA-2012SE64549

PATIENT
  Age: 67 Year
  Sex: Male
  Weight: 87.2 kg

DRUGS (13)
  1. NEXIUM [Suspect]
     Active Substance: ESOMEPRAZOLE MAGNESIUM
     Indication: GASTROOESOPHAGEAL REFLUX DISEASE
     Route: 048
     Dates: start: 20041202, end: 201209
  2. PHENYTOIN. [Concomitant]
     Active Substance: PHENYTOIN
     Dates: start: 2012
  3. ALISKIREN [Concomitant]
     Active Substance: ALISKIREN
     Indication: HYPERTENSION
     Route: 048
     Dates: start: 201002, end: 201101
  4. CLONIDINE. [Concomitant]
     Active Substance: CLONIDINE
     Indication: HYPERTENSION
     Route: 048
     Dates: start: 200501
  5. GAVISCON [Concomitant]
     Active Substance: ALUMINUM HYDROXIDE\MAGNESIUM CARBONATE
  6. PARACETAMOL [Concomitant]
     Active Substance: ACETAMINOPHEN
     Indication: OSTEOARTHRITIS
     Route: 048
     Dates: start: 2005
  7. CITALOPRAM [Concomitant]
     Active Substance: CITALOPRAM HYDROBROMIDE
     Dates: start: 2012
  8. DUTASTERIDE. [Concomitant]
     Active Substance: DUTASTERIDE
     Indication: HYPERTENSION
     Route: 048
     Dates: start: 200906, end: 201010
  9. TAMSULOSIN [Concomitant]
     Active Substance: TAMSULOSIN
     Indication: HYPERTENSION
     Route: 048
     Dates: start: 201007, end: 201011
  10. NEXIUM [Suspect]
     Active Substance: ESOMEPRAZOLE MAGNESIUM
     Indication: GASTROOESOPHAGEAL REFLUX DISEASE
     Route: 048
     Dates: start: 1992
  11. NEXIUM [Suspect]
     Active Substance: ESOMEPRAZOLE MAGNESIUM
     Indication: GASTROOESOPHAGEAL REFLUX DISEASE
     Route: 048
     Dates: end: 2012
  12. RANITIDINE [Concomitant]
     Active Substance: RANITIDINE\RANITIDINE HYDROCHLORIDE
  13. BENDROFLUMETHIAZIDE [Concomitant]
     Active Substance: BENDROFLUMETHIAZIDE
     Dosage: 2-5 MG DAILY
     Route: 048
     Dates: start: 2010

REACTIONS (21)
  - Agitation [Unknown]
  - Depression [Unknown]
  - Vertigo [Unknown]
  - Pain [Recovered/Resolved]
  - Abdominal pain upper [Recovered/Resolved]
  - Headache [Unknown]
  - Poor quality sleep [Unknown]
  - Musculoskeletal disorder [Unknown]
  - Dry mouth [Unknown]
  - Oral candidiasis [Unknown]
  - Aggression [Unknown]
  - Confusional state [Unknown]
  - Abdominal discomfort [Recovered/Resolved]
  - Dysuria [Unknown]
  - Insomnia [Unknown]
  - Malaise [Unknown]
  - Amnesia [Unknown]
  - Vascular dementia [Unknown]
  - Chest pain [Recovered/Resolved]
  - Pain in extremity [Unknown]
  - Osteoporosis [Unknown]

NARRATIVE: CASE EVENT DATE: 2010
